FAERS Safety Report 23705074 (Version 3)
Quarter: 2024Q2

REPORT INFORMATION
  Report Type: Other
  Country: US (occurrence: None)
  Receive Date: 20240404
  Receipt Date: 20240611
  Transmission Date: 20240716
  Serious: Yes (Life-Threatening, Hospitalization, Other)
  Sender: FDA-Public Use
  Company Number: US-ROCHE-3537954

PATIENT
  Age: 67 Year
  Sex: Male
  Weight: 68.554 kg

DRUGS (1)
  1. OCREVUS [Suspect]
     Active Substance: OCRELIZUMAB
     Indication: Relapsing multiple sclerosis
     Dosage: DATE OF TREATMENT : 24/JAN/2021, 07/AUG/2021,
     Route: 042
     Dates: start: 20190516

REACTIONS (5)
  - Staphylococcal infection [Unknown]
  - Joint injury [Unknown]
  - Road traffic accident [Unknown]
  - Sepsis [Recovered/Resolved]
  - Arthritis infective [Unknown]

NARRATIVE: CASE EVENT DATE: 20240301
